FAERS Safety Report 4766233-X (Version None)
Quarter: 2005Q3

REPORT INFORMATION
  Report Type: 
  Country: None (occurrence: None)
  Receive Date: 20050912
  Receipt Date: 20050816
  Transmission Date: 20060218
  Serious: Yes (Other)
  Sender: FDA-Public Use
  Company Number: PHBS2005BR11999

PATIENT
  Age: 44 Year
  Sex: Female

DRUGS (6)
  1. ZOMETA [Suspect]
     Indication: METASTASES TO BONE
     Dosage: 4 MG
     Route: 042
     Dates: start: 20030109, end: 20050120
  2. FEMARA [Concomitant]
     Indication: BREAST CANCER
     Dosage: 2.5
     Route: 065
     Dates: start: 20050316
  3. HERCEPTIN [Concomitant]
     Indication: BREAST CANCER
     Dosage: 110
     Route: 065
     Dates: start: 20030103, end: 20031113
  4. HERCEPTIN [Concomitant]
     Dosage: 330
     Route: 065
     Dates: start: 20031202
  5. TAXOTERE [Concomitant]
     Indication: BREAST CANCER
     Dosage: 110
     Route: 065
     Dates: start: 20030104, end: 20030509
  6. NAVELBINE [Concomitant]
     Indication: BREAST CANCER
     Dosage: 35
     Route: 065
     Dates: start: 20030605, end: 20031202

REACTIONS (13)
  - ASEPTIC NECROSIS BONE [None]
  - BONE DEBRIDEMENT [None]
  - BONE DISORDER [None]
  - DENTAL OPERATION [None]
  - ENDODONTIC PROCEDURE [None]
  - FISTULA [None]
  - GINGIVAL OEDEMA [None]
  - INCISIONAL DRAINAGE [None]
  - METASTASES TO CENTRAL NERVOUS SYSTEM [None]
  - OSTEITIS [None]
  - OSTEONECROSIS [None]
  - SINUS DISORDER [None]
  - TOOTH EXTRACTION [None]
